FAERS Safety Report 5450625-X (Version None)
Quarter: 2007Q3

REPORT INFORMATION
  Report Type: 
  Country: None (occurrence: None)
  Receive Date: 20070910
  Receipt Date: 20070822
  Transmission Date: 20080115
  Serious: Yes (Hospitalization, Other)
  Sender: FDA-Public Use
  Company Number: 5969 / 2007S1007864

PATIENT
  Age: 17 Year
  Sex: Female

DRUGS (1)
  1. AMNESTEEM [Suspect]
     Indication: ACNE CYSTIC
     Dosage: 40 MG, QD, PO
     Route: 048
     Dates: start: 20061106, end: 20061205

REACTIONS (3)
  - COOMBS NEGATIVE HAEMOLYTIC ANAEMIA [None]
  - LEUKOPENIA [None]
  - VIRAL INFECTION [None]
